FAERS Safety Report 13538987 (Version 1)
Quarter: 2017Q2

REPORT INFORMATION
  Report Type: Spontaneous
  Country: US (occurrence: US)
  Receive Date: 20170512
  Receipt Date: 20170512
  Transmission Date: 20170830
  Serious: No
  Sender: FDA-Public Use
  Company Number: US-JNJFOC-20170426366

PATIENT
  Sex: Male
  Weight: 61.24 kg

DRUGS (8)
  1. COLACE [Concomitant]
     Active Substance: DOCUSATE SODIUM
     Indication: CONSTIPATION
     Route: 065
  2. OYSTER SHELL CALCIUM [Concomitant]
     Active Substance: CALCIUM
     Indication: CALCIUM METABOLISM DISORDER
     Route: 065
  3. FERROUS SULFATE. [Concomitant]
     Active Substance: FERROUS SULFATE
     Indication: IRON DEFICIENCY
     Route: 065
  4. PRILOSEC [Concomitant]
     Active Substance: OMEPRAZOLE MAGNESIUM
     Indication: GASTROOESOPHAGEAL REFLUX DISEASE
     Route: 065
  5. INVEGA [Suspect]
     Active Substance: PALIPERIDONE
     Indication: SCHIZOAFFECTIVE DISORDER
     Dosage: 1.5 MG MORNING AND 3??MG EVENING
     Route: 048
  6. KEPPRA [Concomitant]
     Active Substance: LEVETIRACETAM
     Indication: SEIZURE
     Route: 065
  7. VITAMIN D2 [Concomitant]
     Active Substance: ERGOCALCIFEROL
     Indication: VITAMIN D DEFICIENCY
     Route: 065
  8. INVEGA [Suspect]
     Active Substance: PALIPERIDONE
     Indication: IMPULSE-CONTROL DISORDER
     Dosage: 1.5 MG MORNING AND 3??MG EVENING
     Route: 048

REACTIONS (4)
  - Product use in unapproved indication [Unknown]
  - Therapeutic response unexpected [Unknown]
  - Inappropriate schedule of drug administration [Unknown]
  - Off label use [Unknown]
